FAERS Safety Report 6748803-2 (Version None)
Quarter: 2010Q2

REPORT INFORMATION
  Report Type: 
  Country: None (occurrence: None)
  Receive Date: 20100601
  Receipt Date: 20100524
  Transmission Date: 20101027
  Serious: Yes (Other)
  Sender: FDA-Public Use
  Company Number: PHHY2010JP23537

PATIENT
  Age: 42 Year
  Sex: Male

DRUGS (2)
  1. TEGRETOL [Suspect]
     Indication: LIP PAIN
     Dosage: 1000 MG, DAILY
     Route: 048
     Dates: start: 20091001, end: 20100106
  2. TEGRETOL [Suspect]
     Indication: TRIGEMINAL NEURALGIA

REACTIONS (2)
  - CENTRAL NERVOUS SYSTEM LESION [None]
  - CRANIOTOMY [None]
